FAERS Safety Report 4332444-0 (Version None)
Quarter: 2004Q2

REPORT INFORMATION
  Report Type: 
  Country: None (occurrence: None)
  Receive Date: 20040401
  Receipt Date: 20040318
  Transmission Date: 20050107
  Serious: Yes (Death)
  Sender: FDA-Public Use
  Company Number: 2004-FF-00194FF

PATIENT
  Age: 60 Year
  Sex: Male

DRUGS (2)
  1. PERSANTINE [Suspect]
     Indication: SCINTIGRAPHY
     Dosage: 50 MG
     Route: 042
  2. THALLIUM (THALLIUM (201 TL)) (UNK) [Concomitant]

REACTIONS (3)
  - CARDIAC ARREST [None]
  - DYSPNOEA [None]
  - HYPOTENSION [None]
